FAERS Safety Report 14026371 (Version 3)
Quarter: 2018Q1

REPORT INFORMATION
  Report Type: Report from Study
  Country: ES (occurrence: ES)
  Receive Date: 20170929
  Receipt Date: 20180124
  Transmission Date: 20180508
  Serious: Yes (Death, Hospitalization, Other)
  Sender: FDA-Public Use
  Company Number: ES-BRISTOL-MYERS SQUIBB COMPANY-BMS-2017-086872

PATIENT
  Age: 37 Year
  Sex: Male

DRUGS (4)
  1. NIVOLUMAB [Suspect]
     Active Substance: NIVOLUMAB
     Indication: SOFT TISSUE SARCOMA
     Route: 065
  2. SUNITINIB MALATE. [Suspect]
     Active Substance: SUNITINIB MALATE
     Indication: BONE SARCOMA
     Dosage: 1 DF, UNK
     Route: 048
     Dates: start: 20170728, end: 20170921
  3. NIVOLUMAB [Suspect]
     Active Substance: NIVOLUMAB
     Indication: BONE SARCOMA
     Dosage: 3 MG/KG, UNK
     Route: 042
     Dates: start: 20170810, end: 20170921
  4. SUNITINIB MALATE. [Suspect]
     Active Substance: SUNITINIB MALATE
     Indication: SOFT TISSUE SARCOMA
     Route: 065

REACTIONS (2)
  - Malignant neoplasm progression [Fatal]
  - Vena cava thrombosis [Fatal]

NARRATIVE: CASE EVENT DATE: 20170921
